FAERS Safety Report 13553076 (Version 5)
Quarter: 2017Q3

REPORT INFORMATION
  Report Type: Report from Study
  Country: CA (occurrence: CA)
  Receive Date: 20170517
  Receipt Date: 20170929
  Transmission Date: 20171127
  Serious: Yes (Other)
  Sender: FDA-Public Use
  Company Number: CA-ROCHE-1870297

PATIENT
  Age: 74 Year
  Sex: Male

DRUGS (4)
  1. ALECENSARO [Suspect]
     Active Substance: ALECTINIB
     Dosage: DOSE WAS UNKNOWN
     Route: 048
     Dates: start: 2017
  2. ALECENSARO [Suspect]
     Active Substance: ALECTINIB
     Indication: NON-SMALL CELL LUNG CANCER
     Route: 048
     Dates: start: 20161205, end: 2017
  3. ALECENSARO [Suspect]
     Active Substance: ALECTINIB
     Route: 048
     Dates: start: 2017
  4. ALECENSARO [Suspect]
     Active Substance: ALECTINIB
     Route: 048
     Dates: start: 20170620

REACTIONS (9)
  - Underdose [Unknown]
  - Fall [Unknown]
  - Loss of personal independence in daily activities [Unknown]
  - Muscle atrophy [Not Recovered/Not Resolved]
  - Constipation [Unknown]
  - Dehydration [Unknown]
  - Headache [Unknown]
  - Circumstance or information capable of leading to medication error [Unknown]
  - Asthenia [Not Recovered/Not Resolved]

NARRATIVE: CASE EVENT DATE: 20161219
